FAERS Safety Report 5046695-3 (Version None)
Quarter: 2006Q3

REPORT INFORMATION
  Report Type: 
  Country: None (occurrence: None)
  Receive Date: 20060710
  Receipt Date: 20051215
  Transmission Date: 20061208
  Serious: Yes (Death, Life-Threatening, Hospitalization)
  Sender: FDA-Public Use
  Company Number: UG-GILEAD-2005-0009028

PATIENT
  Sex: Female

DRUGS (7)
  1. TENOFOVIR DISOPROXIL FUMARATE [Suspect]
     Indication: HIV INFECTION
     Dates: start: 20031205, end: 20051031
  2. TENOFOVIR DISOPROXIL FUMARATE [Suspect]
     Dates: start: 20030822, end: 20031127
  3. TENOFOVIR DISOPROXIL FUMARATE [Suspect]
     Dates: start: 20030710, end: 20030808
  4. COMBIVIR [Concomitant]
     Indication: HIV INFECTION
     Dates: start: 20030822, end: 20031127
  5. COMBIVIR [Concomitant]
     Dates: start: 20030710, end: 20030808
  6. LAMIVUDINE [Concomitant]
     Dates: start: 20031205, end: 20051121
  7. STAVUDINE [Concomitant]
     Dates: start: 20031205, end: 20051121

REACTIONS (11)
  - ANAEMIA [None]
  - AZOTAEMIA [None]
  - BLOOD PRESSURE INCREASED [None]
  - DYSPNOEA [None]
  - NEUTROPENIA [None]
  - OEDEMA PERIPHERAL [None]
  - REFUSAL OF TREATMENT BY PATIENT [None]
  - RENAL FAILURE [None]
  - RENAL FAILURE ACUTE [None]
  - RENAL FAILURE CHRONIC [None]
  - SWELLING FACE [None]
